FAERS Safety Report 23146730 (Version 3)
Quarter: 2023Q4

REPORT INFORMATION
  Report Type: Spontaneous
  Country: JP (occurrence: JP)
  Receive Date: 20231105
  Receipt Date: 20231214
  Transmission Date: 20240109
  Serious: Yes (Death, Other)
  Sender: FDA-Public Use
  Company Number: JP-002147023-NVSJ2023JP015634

PATIENT
  Sex: Male

DRUGS (1)
  1. LUTATHERA [Suspect]
     Active Substance: LUTETIUM OXODOTREOTIDE LU-177
     Indication: Phaeochromocytoma
     Dosage: UNK
     Route: 042
     Dates: start: 20231012, end: 20231012

REACTIONS (3)
  - Phaeochromocytoma [Fatal]
  - Malignant neoplasm progression [Fatal]
  - Monoplegia [Unknown]
